FAERS Safety Report 5205729-3 (Version None)
Quarter: 2007Q1

REPORT INFORMATION
  Report Type: 
  Country: None (occurrence: None)
  Receive Date: 20070105
  Receipt Date: 20070105
  Transmission Date: 20070707
  Serious: Yes (Hospitalization)
  Sender: FDA-Public Use
  Company Number: None

PATIENT
  Sex: Male
  Weight: 68.0396 kg

DRUGS (20)
  1. RITUXAN [Suspect]
     Indication: MYELODYSPLASTIC SYNDROME
     Dosage: 660 MG QWEEK IV
     Route: 042
     Dates: start: 20060908
  2. RITUXAN [Suspect]
     Indication: MYELODYSPLASTIC SYNDROME
     Dosage: 660 MG QWEEK IV
     Route: 042
     Dates: start: 20060914
  3. CYANOCOBALAMIN [Concomitant]
  4. ISOSORBIDE MONONITRATE [Concomitant]
  5. METOPROLOL SUCCINATE [Concomitant]
  6. IPRATROPIUM BROMIDE [Concomitant]
  7. SIMVASTATIN [Concomitant]
  8. DEXTRAN/ME CELLULOSE [Concomitant]
  9. CLOPIDOGREL BISULFATE [Concomitant]
  10. DOCUSATE NA [Concomitant]
  11. OMEPRAZOLE [Concomitant]
  12. HEMORRHOIDAL/HC [Concomitant]
  13. NITROGLYCERIN [Concomitant]
  14. FOLIC ACID [Concomitant]
  15. FUROSEMIDE [Concomitant]
  16. MAGNESIUM OXIDE [Concomitant]
  17. POTASSIUM CHLORIDE [Concomitant]
  18. PREDNISONE [Concomitant]
  19. LEVALBUTEROL HCL [Concomitant]
  20. DARBEPOETIN [Concomitant]

REACTIONS (2)
  - CHEST PAIN [None]
  - HAEMOLYTIC ANAEMIA [None]
